FAERS Safety Report 9555801 (Version 1)
Quarter: 2013Q3

REPORT INFORMATION
  Report Type: Spontaneous
  Country: US (occurrence: None)
  Receive Date: 20130815
  Receipt Date: 20130815
  Transmission Date: 20140515
  Serious: Yes (Life-Threatening, Hospitalization, Other)
  Sender: FDA-Public Use
  Company Number: ADR-2013-00746

PATIENT
  Sex: Female

DRUGS (3)
  1. BACLOFEN INTRATHECAL [Suspect]
  2. CLONIDINE (75 MCG/ML) [Concomitant]
  3. INTRATHECAL [Concomitant]

REACTIONS (6)
  - Hypotension [None]
  - Hypotonia [None]
  - Somnolence [None]
  - Muscle spasticity [None]
  - Coma [None]
  - Mental status changes [None]
